FAERS Safety Report 21224795 (Version 2)
Quarter: 2022Q4

REPORT INFORMATION
  Report Type: Report from Study
  Country: US (occurrence: US)
  Receive Date: 20220817
  Receipt Date: 20221208
  Transmission Date: 20230112
  Serious: No
  Sender: FDA-Public Use
  Company Number: US-SUNOVION-2022SUN002466

PATIENT
  Age: 62 Year
  Sex: Female

DRUGS (1)
  1. KYNMOBI [Suspect]
     Active Substance: APOMORPHINE HYDROCHLORIDE
     Indication: Parkinson^s disease
     Dosage: 30 MG, AS NECESSARY
     Route: 060
     Dates: start: 20220813

REACTIONS (2)
  - Tooth discolouration [Unknown]
  - Nausea [Unknown]

NARRATIVE: CASE EVENT DATE: 20220815
